FAERS Safety Report 8010540-4 (Version None)
Quarter: 2011Q4

REPORT INFORMATION
  Report Type: 
  Country: None (occurrence: None)
  Receive Date: 20111228
  Receipt Date: 20111220
  Transmission Date: 20120403
  Serious: Yes (Hospitalization, Other)
  Sender: FDA-Public Use
  Company Number: PHHY2011BR111138

PATIENT
  Age: 51 Year
  Sex: Female

DRUGS (5)
  1. TRILEPTAL [Suspect]
     Indication: CONVULSION
     Dosage: 300 MG, 1.5 MG, TID
     Route: 048
  2. TRILEPTAL [Suspect]
     Dosage: 300 MG, 1.5 MG, TID
     Route: 048
  3. INVASTATIN [Concomitant]
     Indication: BLOOD CHOLESTEROL INCREASED
     Dosage: UNK UKN, UNK
  4. TRILEPTAL [Suspect]
     Dosage: 300 MG, 2 DF, TID
  5. CALCIUM ACETATE [Concomitant]
     Dosage: UNK UKN, UNK

REACTIONS (7)
  - THYROID FUNCTION TEST ABNORMAL [None]
  - SOMNOLENCE [None]
  - HEADACHE [None]
  - CONVULSION [None]
  - DISTURBANCE IN ATTENTION [None]
  - THYROID CANCER [None]
  - INCORRECT PRODUCT STORAGE [None]
